FAERS Safety Report 12519484 (Version 1)
Quarter: 2016Q3

REPORT INFORMATION
  Report Type: Spontaneous
  Country: DE (occurrence: DE)
  Receive Date: 20160701
  Receipt Date: 20160701
  Transmission Date: 20161109
  Serious: Yes (Congenital Anomaly)
  Sender: FDA-Public Use
  Company Number: DE-009507513-1606DEU012193

PATIENT
  Age: 1 Day
  Sex: Female
  Weight: 2.47 kg

DRUGS (8)
  1. FEXOFENADINE [Suspect]
     Active Substance: FEXOFENADINE\FEXOFENADINE HYDROCHLORIDE
     Dosage: UNK
     Route: 064
  2. ALVESCO [Suspect]
     Active Substance: CICLESONIDE
     Dosage: UNK
     Route: 064
  3. ROCALTROL [Concomitant]
     Active Substance: CALCITRIOL
     Dosage: UNK
     Route: 064
  4. NASONEX [Suspect]
     Active Substance: MOMETASONE FUROATE
     Dosage: UNK
     Route: 064
  5. L-THYROXIN [Concomitant]
     Active Substance: LEVOTHYROXINE SODIUM
     Dosage: UNK
     Route: 064
  6. CALCIUM SANDOZ D [Concomitant]
     Dosage: UNK
     Route: 064
  7. BERODUAL [Suspect]
     Active Substance: FENOTEROL HYDROBROMIDE\IPRATROPIUM BROMIDE
     Dosage: UNK
     Route: 064
  8. FOLIO [Concomitant]
     Active Substance: FOLIC ACID
     Dosage: UNK
     Route: 064

REACTIONS (2)
  - Small for dates baby [Not Recovered/Not Resolved]
  - Fallot^s tetralogy [Not Recovered/Not Resolved]

NARRATIVE: CASE EVENT DATE: 20160227
